FAERS Safety Report 9847659 (Version 1)
Quarter: 2014Q1

REPORT INFORMATION
  Report Type: Spontaneous
  Country: US (occurrence: US)
  Receive Date: 20140128
  Receipt Date: 20140128
  Transmission Date: 20141002
  Serious: No
  Sender: FDA-Public Use
  Company Number: US-009507513-1401USA011684

PATIENT
  Sex: Female

DRUGS (1)
  1. ISENTRESS [Suspect]
     Indication: INJURY ASSOCIATED WITH DEVICE
     Dosage: 400 MG, BID
     Route: 048
     Dates: start: 20131018, end: 20131115

REACTIONS (1)
  - White blood cell count decreased [Unknown]
